FAERS Safety Report 16847480 (Version 2)
Quarter: 2020Q1

REPORT INFORMATION
  Report Type: Spontaneous
  Country: US (occurrence: US)
  Receive Date: 20190924
  Receipt Date: 20200324
  Transmission Date: 20200409
  Serious: No
  Sender: FDA-Public Use
  Company Number: US-ACORDA-ACO_159538_2019

PATIENT
  Sex: Female

DRUGS (1)
  1. INBRIJA [Suspect]
     Active Substance: LEVODOPA
     Indication: PARKINSON^S DISEASE
     Dosage: 2 CAPSULES AS NEEDED
     Dates: start: 20190611

REACTIONS (5)
  - Device issue [Unknown]
  - Product residue present [Unknown]
  - Product dose omission [Unknown]
  - Choking [Unknown]
  - Device use error [Unknown]
